FAERS Safety Report 6160782-8 (Version None)
Quarter: 2009Q2

REPORT INFORMATION
  Report Type: 
  Country: None (occurrence: None)
  Receive Date: 20090420
  Receipt Date: 20090406
  Transmission Date: 20091009
  Serious: Yes (Hospitalization, Disabling, Other)
  Sender: FDA-Public Use
  Company Number: PHHY2009JP02554

PATIENT
  Sex: Male
  Weight: 63 kg

DRUGS (3)
  1. DIOVAN [Suspect]
     Indication: HYPERTENSION
     Dosage: 160 MG QD
     Route: 048
     Dates: start: 20081028, end: 20081228
  2. ADALAT CC [Suspect]
     Indication: BLOOD PRESSURE
     Dosage: 40 MG DAILY
     Route: 048
     Dates: start: 20081202, end: 20081228
  3. MEVALOTIN [Suspect]
     Dosage: UNK
     Route: 048
     Dates: end: 20081228

REACTIONS (10)
  - ALTERED STATE OF CONSCIOUSNESS [None]
  - BLOOD CREATININE INCREASED [None]
  - BLOOD UREA INCREASED [None]
  - GLOMERULONEPHRITIS RAPIDLY PROGRESSIVE [None]
  - HYPERTENSION [None]
  - HYPERTENSIVE EMERGENCY [None]
  - MALAISE [None]
  - NEPHROTIC SYNDROME [None]
  - RENAL FAILURE ACUTE [None]
  - RENAL TUBULAR NECROSIS [None]
